FAERS Safety Report 13048298 (Version 1)
Quarter: 2016Q4

REPORT INFORMATION
  Report Type: Spontaneous
  Country: US (occurrence: US)
  Receive Date: 20161221
  Receipt Date: 20161221
  Transmission Date: 20170207
  Serious: No
  Sender: FDA-Public Use
  Company Number: US-TARO-2015TAR01185

PATIENT
  Age: 79 Year
  Sex: Female
  Weight: 69.84 kg

DRUGS (1)
  1. CLOBETASOL PROPIONATE TOPICAL SOLUTION USP 0.05% [Suspect]
     Active Substance: CLOBETASOL PROPIONATE
     Indication: PSORIASIS
     Dosage: UNK UNK, 2X/DAY TO SCALP, HAIRLINE, BACK OF NECK AND BELOW EAR LOBES
     Route: 061
     Dates: start: 20151223, end: 20151227

REACTIONS (2)
  - Urticaria [Recovering/Resolving]
  - Pain [Recovering/Resolving]

NARRATIVE: CASE EVENT DATE: 20151226
